FAERS Safety Report 5984220-0 (Version None)
Quarter: 2008Q4

REPORT INFORMATION
  Report Type: 
  Country: None (occurrence: None)
  Receive Date: 20081208
  Receipt Date: 20081203
  Transmission Date: 20090506
  Serious: Yes (Death)
  Sender: FDA-Public Use
  Company Number: FR-ABBOTT-08P-056-0491307-00

PATIENT
  Age: 53 Year
  Sex: Male

DRUGS (8)
  1. CYCLOSPORINE [Suspect]
     Indication: IMMUNOSUPPRESSANT DRUG THERAPY
  2. MYCOPHENOLATE MOFETIL [Concomitant]
     Indication: DRUG USE FOR UNKNOWN INDICATION
     Dosage: NOT REPORTED
  3. POLYCLONAL ANTITHYMOCYTE GLOBULIN [Concomitant]
     Indication: DRUG USE FOR UNKNOWN INDICATION
     Dosage: NOT REPORTED
  4. ANTIBACTERIALS [Concomitant]
     Indication: BACTERAEMIA
     Dosage: NOT REPORTED
  5. ANTIBACTERIALS [Concomitant]
     Indication: STAPHYLOCOCCAL BACTERAEMIA
  6. VORICONAZOLE [Concomitant]
     Indication: DRUG USE FOR UNKNOWN INDICATION
     Dosage: NOT REPORTED
  7. CASPOFUNGIN [Concomitant]
     Indication: DRUG USE FOR UNKNOWN INDICATION
     Dosage: NOT REPORTED
  8. AMPHOTERICIN B [Concomitant]
     Indication: DRUG USE FOR UNKNOWN INDICATION
     Dosage: NOT REPORTED

REACTIONS (2)
  - ASPERGILLOSIS [None]
  - ENDOCARDITIS [None]
